FAERS Safety Report 19968564 (Version 2)
Quarter: 2021Q4

REPORT INFORMATION
  Report Type: Spontaneous
  Country: ES (occurrence: ES)
  Receive Date: 20211019
  Receipt Date: 20211123
  Transmission Date: 20220303
  Serious: Yes (Hospitalization)
  Sender: FDA-Public Use
  Company Number: None

PATIENT
  Age: 78 Year
  Sex: Male

DRUGS (2)
  1. ZERBAXA [Suspect]
     Active Substance: CEFTOLOZANE SULFATE\TAZOBACTAM SODIUM
     Indication: Pneumonia bacterial
     Dosage: 2 DOSAGE FORM, QD, 1 G/0.5 G POWDER FOR CONCENTRATE FOR SOLUTION FOR INFUSION, 10 VIALS
     Route: 042
     Dates: start: 20201103, end: 20201105
  2. LINEZOLID [Concomitant]
     Active Substance: LINEZOLID
     Dosage: UNK
     Route: 042
     Dates: start: 20201103

REACTIONS (2)
  - Tracheal aspirate culture [Recovered/Resolved]
  - Suspected product quality issue [Recovered/Resolved]

NARRATIVE: CASE EVENT DATE: 20201103
